FAERS Safety Report 9682299 (Version 2)
Quarter: 2014Q1

REPORT INFORMATION
  Report Type: Report from Study
  Country: DE (occurrence: DE)
  Receive Date: 20131112
  Receipt Date: 20140224
  Transmission Date: 20141002
  Serious: Yes (Life-Threatening)
  Sender: FDA-Public Use
  Company Number: DE-ROCHE-1298336

PATIENT
  Age: 54 Year
  Sex: Female

DRUGS (14)
  1. PEG-INTERFERON ALFA 2A [Suspect]
     Indication: HEPATITIS C
     Route: 058
     Dates: start: 20121121, end: 20130515
  2. RIBAVIRIN [Suspect]
     Indication: HEPATITIS C
     Route: 048
     Dates: start: 20121121, end: 20130515
  3. TELAPREVIR [Suspect]
     Indication: HEPATITIS C
     Route: 048
     Dates: start: 20121121, end: 20130213
  4. METOPROLOL SUCCINATE [Concomitant]
     Dosage: FREQUENCY : 1-0-1-0.
     Route: 065
  5. DIGITOXIN [Concomitant]
     Route: 065
  6. CANDESARTAN [Concomitant]
     Route: 065
  7. AMLODIPIN [Concomitant]
     Route: 065
  8. MINOXIDIL [Concomitant]
     Route: 065
  9. URAPIDIL [Concomitant]
     Route: 065
  10. PREDNISOLON [Concomitant]
     Route: 065
  11. LEVOTHYROXINE [Concomitant]
     Route: 065
  12. LIOTHYRONIN [Concomitant]
     Route: 065
  13. CALCITRIOL [Concomitant]
     Route: 065
  14. TILIDIN [Concomitant]
     Route: 065

REACTIONS (1)
  - Shock haemorrhagic [Recovered/Resolved]
